FAERS Safety Report 8418227-0 (Version None)
Quarter: 2012Q2

REPORT INFORMATION
  Report Type: 
  Country: None (occurrence: None)
  Receive Date: 20120531
  Receipt Date: 20120517
  Transmission Date: 20120825
  Serious: Yes (Other)
  Sender: FDA-Public Use
  Company Number: 1292906

PATIENT
  Age: 18 Year
  Sex: Female

DRUGS (2)
  1. MEROPENEM [Suspect]
     Indication: CYSTIC FIBROSIS
     Dosage: 2 G GRAMS, 1 DAY, INTRAVENOUS
     Route: 042
     Dates: start: 20120516, end: 20120516
  2. MEROPENEM [Suspect]
     Indication: CONDITION AGGRAVATED
     Dosage: 2 G GRAMS, 1 DAY, INTRAVENOUS
     Route: 042
     Dates: start: 20120516, end: 20120516

REACTIONS (2)
  - ANAPHYLACTIC REACTION [None]
  - RESPIRATORY ARREST [None]
